FAERS Safety Report 12120503 (Version 2)
Quarter: 2016Q2

REPORT INFORMATION
  Report Type: Not Available
  Country: DE (occurrence: DE)
  Receive Date: 20160226
  Receipt Date: 20160527
  Transmission Date: 20160815
  Serious: Yes (Life-Threatening, Hospitalization, Other)
  Sender: FDA-Public Use
  Company Number: DE-MUNDIPHARMA DS AND PHARMACOVIGILANCE-DEU-2016-0017692

PATIENT
  Age: 62 Year
  Sex: Male
  Weight: 68 kg

DRUGS (22)
  1. PRAVASTATIN [Concomitant]
     Active Substance: PRAVASTATIN\PRAVASTATIN SODIUM
     Dosage: 20 MG, PM
  2. PREDNISOLON                        /00016201/ [Concomitant]
     Active Substance: PREDNISOLONE
     Dosage: 7.5 MG, AM
  3. TARGIN 10/5 MG RETARDTABLETTEN [Suspect]
     Active Substance: NALOXONE HYDROCHLORIDE\OXYCODONE HYDROCHLORIDE
     Indication: PAIN
     Dosage: 1 DF, PM
     Route: 048
     Dates: start: 20160105
  4. FOSAMAX [Concomitant]
     Active Substance: ALENDRONATE SODIUM
     Dosage: 70 MG, 1/WEEK
  5. AMOXICILLIN. [Concomitant]
     Active Substance: AMOXICILLIN
     Dosage: 1500 MG, UNK
  6. TARGIN 10/5 MG RETARDTABLETTEN [Suspect]
     Active Substance: NALOXONE HYDROCHLORIDE\OXYCODONE HYDROCHLORIDE
     Dosage: 2 DF, DAILY
     Route: 048
     Dates: start: 20151210, end: 20160105
  7. ESOMEPRAZOL                        /01479301/ [Concomitant]
     Active Substance: ESOMEPRAZOLE
     Dosage: 40 MG, AM
  8. SALBUTAMOL [Concomitant]
     Active Substance: ALBUTEROL
     Dosage: UNK, TID PRN
     Route: 055
  9. MULTIVITAMINS [Concomitant]
     Active Substance: VITAMINS
  10. NOVALGIN [Suspect]
     Active Substance: METAMIZOLE SODIUM
     Indication: HIP FRACTURE
     Dosage: 500 MG, QID
     Route: 048
     Dates: start: 20151229, end: 20160105
  11. COTRIM D.S. [Concomitant]
     Active Substance: SULFAMETHOXAZOLE\TRIMETHOPRIM
     Dosage: 0.5 TABLET, 2/WEEK (TUESDAY+FRIDAY)
  12. METOPROLOL. [Concomitant]
     Active Substance: METOPROLOL
     Dosage: 50 MG, AM
     Route: 048
  13. AMPHO MORONAL [Concomitant]
     Active Substance: AMPHOTERICIN B
     Indication: FUNGAL INFECTION
     Dosage: UNK, PRN
  14. PROGRAF [Suspect]
     Active Substance: TACROLIMUS\TACROLIMUS ANHYDROUS
     Indication: LUNG TRANSPLANT
     Dosage: 4.5 MG, DAILY
     Route: 048
     Dates: start: 20160105
  15. MAGNESIUM [Concomitant]
     Active Substance: MAGNESIUM
     Dosage: 2 DF, BID
  16. CLEXANE [Concomitant]
     Active Substance: ENOXAPARIN SODIUM
     Dosage: 1 DF, DAILY
     Route: 058
  17. NOVAMIN                            /06276704/ [Suspect]
     Active Substance: METAMIZOLE SODIUM
     Indication: HIP FRACTURE
     Dosage: 1000 MG, QID
     Route: 048
     Dates: start: 20151217, end: 20151228
  18. RAMIPRIL. [Concomitant]
     Active Substance: RAMIPRIL
     Dosage: 2.5 MG, BID
  19. SEMPERA [Concomitant]
     Active Substance: ITRACONAZOLE
     Dosage: 100 MG, BID
  20. NOVALGIN [Suspect]
     Active Substance: METAMIZOLE SODIUM
     Dosage: 500 MG, QID
     Route: 048
     Dates: start: 20151210, end: 20151216
  21. CERTICAN [Suspect]
     Active Substance: EVEROLIMUS
     Indication: LUNG TRANSPLANT
     Dosage: 0.75 MG, DAILY
     Route: 048
     Dates: start: 20160105
  22. CALCIVIT D [Concomitant]
     Dosage: 1 PACKET (600MG+400IE), BID

REACTIONS (4)
  - Nausea [Recovered/Resolved]
  - Hyponatraemia [Recovered/Resolved]
  - Hypochloraemia [Recovered/Resolved]
  - Dizziness [Recovered/Resolved]

NARRATIVE: CASE EVENT DATE: 20160105
